FAERS Safety Report 8075567-5 (Version None)
Quarter: 2012Q1

REPORT INFORMATION
  Report Type: 
  Country: None (occurrence: None)
  Receive Date: 20120127
  Receipt Date: 20120117
  Transmission Date: 20120608
  Serious: Yes (Hospitalization)
  Sender: FDA-Public Use
  Company Number: JP-BRISTOL-MYERS SQUIBB COMPANY-16233546

PATIENT
  Age: 24 Year
  Sex: Female
  Weight: 60 kg

DRUGS (2)
  1. SEROQUEL [Concomitant]
     Dosage: TAB
     Dates: start: 20110820
  2. ABILIFY [Suspect]
     Indication: SCHIZOPHRENIA
     Dosage: 6MG30SEP-13OCT:14D,9MG14-18OCT:5D,6MG19-28OCT:10D,3MG29OCT-1NOV:4D,2MG2-4NOV:3D,1MG5-7NOV11:3D
     Route: 048
     Dates: start: 20110930, end: 20111107

REACTIONS (1)
  - PSYCHIATRIC SYMPTOM [None]
